FAERS Safety Report 8520961-9 (Version None)
Quarter: 2012Q3

REPORT INFORMATION
  Report Type: 
  Country: None (occurrence: None)
  Receive Date: 20120706
  Receipt Date: 20120626
  Transmission Date: 20120928
  Serious: Yes (Other)
  Sender: FDA-Public Use
  Company Number: NGX_01125_2012

PATIENT
  Sex: Male

DRUGS (1)
  1. QUTENZA (CAPSAICIN) PATCH (8 %, 8 %, 8 %) [Suspect]
     Indication: NEURALGIA
     Dosage: SEE IMAGE
     Route: 061

REACTIONS (2)
  - BENIGN NEOPLASM OF SPINAL CORD [None]
  - DRUG INEFFECTIVE [None]
